FAERS Safety Report 10467847 (Version 1)
Quarter: 2014Q3

REPORT INFORMATION
  Report Type: Spontaneous
  Country: US (occurrence: US)
  Receive Date: 20140922
  Receipt Date: 20140922
  Transmission Date: 20150326
  Serious: Yes (Death, Other)
  Sender: FDA-Public Use
  Company Number: US-GILEAD-2014-0115846

PATIENT
  Age: 64 Year
  Sex: Female

DRUGS (18)
  1. LETAIRIS [Suspect]
     Active Substance: AMBRISENTAN
     Indication: PULMONARY HYPERTENSION
     Dosage: 10 MG, QD
     Route: 065
     Dates: start: 20131126, end: 201408
  2. MORPHINE [Concomitant]
     Active Substance: MORPHINE
  3. ISOSORB MONO [Concomitant]
  4. CYMBALTA [Concomitant]
     Active Substance: DULOXETINE HYDROCHLORIDE
  5. LORATADINE. [Concomitant]
     Active Substance: LORATADINE
  6. XARELTO [Concomitant]
     Active Substance: RIVAROXABAN
  7. METOPROLOL [Concomitant]
     Active Substance: METOPROLOL
  8. NORCO [Concomitant]
     Active Substance: ACETAMINOPHEN\HYDROCODONE BITARTRATE
  9. FUROSEMIDE. [Concomitant]
     Active Substance: FUROSEMIDE
  10. SEROQUEL [Concomitant]
     Active Substance: QUETIAPINE FUMARATE
  11. AMIODARONE [Concomitant]
     Active Substance: AMIODARONE
  12. NEXIUM [Concomitant]
     Active Substance: ESOMEPRAZOLE MAGNESIUM
  13. COLCHICINE. [Concomitant]
     Active Substance: COLCHICINE
  14. LOSARTAN [Concomitant]
     Active Substance: LOSARTAN
  15. KLOR-CON [Concomitant]
     Active Substance: POTASSIUM CHLORIDE
  16. MULTIVITAMIN                       /07504101/ [Concomitant]
     Active Substance: VITAMINS
  17. KEPPRA [Concomitant]
     Active Substance: LEVETIRACETAM
  18. CRESTOR [Concomitant]
     Active Substance: ROSUVASTATIN CALCIUM

REACTIONS (2)
  - Clostridium difficile infection [Fatal]
  - Septic shock [Fatal]
